FAERS Safety Report 7176326-8 (Version None)
Quarter: 2010Q4

REPORT INFORMATION
  Report Type: 
  Country: None (occurrence: None)
  Receive Date: 20101207
  Receipt Date: 20101126
  Transmission Date: 20110411
  Serious: Yes (Other)
  Sender: FDA-Public Use
  Company Number: 2010US004840

PATIENT
  Sex: Female

DRUGS (1)
  1. PROGRAF [Suspect]
     Indication: LIVER TRANSPLANT

REACTIONS (7)
  - ECZEMA [None]
  - EOSINOPHILIC COLITIS [None]
  - EOSINOPHILIC OESOPHAGITIS [None]
  - FOOD ALLERGY [None]
  - GASTROENTERITIS EOSINOPHILIC [None]
  - MILK ALLERGY [None]
  - RHINITIS ALLERGIC [None]
